FAERS Safety Report 8831612 (Version 1)
Quarter: 2012Q4

REPORT INFORMATION
  Report Type: 
  Country: CH (occurrence: CH)
  Receive Date: 20121009
  Receipt Date: 20121009
  Transmission Date: 20130627
  Serious: Yes (Other)
  Sender: FDA-Public Use
  Company Number: CH-BAYER-2012-102374

PATIENT
  Sex: Female

DRUGS (2)
  1. QLAIRA [Suspect]
     Indication: ORAL CONTRACEPTION
     Dosage: UNK
     Route: 048
     Dates: start: 201202, end: 20120628
  2. NUVARING [Concomitant]
     Indication: CONTRACEPTION
     Dosage: UNK
     Route: 015
     Dates: start: 2010, end: 201202

REACTIONS (1)
  - Eczema [Recovered/Resolved]
